FAERS Safety Report 7862295-1 (Version None)
Quarter: 2011Q4

REPORT INFORMATION
  Report Type: 
  Country: None (occurrence: None)
  Receive Date: 20111027
  Receipt Date: 20101104
  Transmission Date: 20120403
  Serious: No
  Sender: FDA-Public Use
  Company Number: US-AMGEN-USASP2010003691

PATIENT
  Age: 57 Year
  Sex: Female
  Weight: 81.633 kg

DRUGS (9)
  1. GLUCOSE + CHONDROITIN [Concomitant]
     Dosage: UNK
  2. ENBREL [Suspect]
     Indication: PRODUCT USED FOR UNKNOWN INDICATION
     Dosage: 50 MG, QWK
  3. COQ-10 [Suspect]
     Dosage: 100 MG, UNK
  4. CYMBALTA [Concomitant]
     Dosage: 60 MG, UNK
  5. METHOTREXATE [Concomitant]
     Dosage: 2.5 MG, UNK
  6. COLLAGEN [Concomitant]
  7. MULTI-VITAMINS [Suspect]
  8. CALCIUM +D [Suspect]
  9. FOLIC ACID [Concomitant]
     Dosage: 1 MG, UNK

REACTIONS (1)
  - BLOOD PRESSURE FLUCTUATION [None]
